FAERS Safety Report 4524677-5 (Version None)
Quarter: 2004Q4

REPORT INFORMATION
  Report Type: 
  Country: None (occurrence: None)
  Receive Date: 20041211
  Receipt Date: 20030605
  Transmission Date: 20050328
  Serious: Yes (Hospitalization, Disabling)
  Sender: FDA-Public Use
  Company Number: US-MERCK-0306USA00802

PATIENT
  Age: 55 Year
  Sex: Male
  Weight: 113 kg

DRUGS (3)
  1. VIOXX [Suspect]
     Indication: PAIN IN EXTREMITY
     Route: 048
     Dates: start: 19990813
  2. BUMEX [Concomitant]
     Route: 065
  3. DURICEF [Concomitant]
     Route: 065
     Dates: start: 19990823

REACTIONS (6)
  - ADVERSE EVENT [None]
  - ARTERITIS [None]
  - CARPAL TUNNEL SYNDROME [None]
  - LUNG DISORDER [None]
  - NEURALGIA [None]
  - RADICULAR PAIN [None]
